FAERS Safety Report 9838802 (Version 1)
Quarter: 2014Q1

REPORT INFORMATION
  Report Type: Spontaneous
  Country: US (occurrence: None)
  Receive Date: 20140117
  Receipt Date: 20140117
  Transmission Date: 20141002
  Serious: Yes (Hospitalization)
  Sender: FDA-Public Use
  Company Number: None

PATIENT
  Age: 87 Year
  Sex: Male
  Weight: 68 kg

DRUGS (1)
  1. RIVAROXABAN 20MG [Suspect]
     Indication: ATRIAL FIBRILLATION
     Route: 048
     Dates: start: 20131105, end: 20131108

REACTIONS (6)
  - Haemoptysis [None]
  - Haematuria [None]
  - Haematemesis [None]
  - Epistaxis [None]
  - Haemorrhage [None]
  - Chest X-ray abnormal [None]
